FAERS Safety Report 9311766 (Version 1)
Quarter: 2013Q2

REPORT INFORMATION
  Report Type: Spontaneous
  Country: US (occurrence: US)
  Receive Date: 20130528
  Receipt Date: 20130528
  Transmission Date: 20140414
  Serious: No
  Sender: FDA-Public Use
  Company Number: US-009507513-1304USA014065

PATIENT
  Age: 9 Month
  Sex: Male

DRUGS (2)
  1. CLARITIN ORAL SOLUTION [Suspect]
     Indication: EAR INFECTION
     Dosage: 1.8 ML, QD
     Route: 048
     Dates: start: 20130410
  2. CEFDINIR [Concomitant]
     Indication: EAR INFECTION
     Dosage: UNK, UNKNOWN

REACTIONS (4)
  - Accidental overdose [Unknown]
  - No adverse event [Unknown]
  - Drug administered to patient of inappropriate age [Unknown]
  - Off label use [Unknown]
